FAERS Safety Report 4586693-7 (Version None)
Quarter: 2005Q1

REPORT INFORMATION
  Report Type: 
  Country: None (occurrence: None)
  Receive Date: 20050217
  Receipt Date: 20050217
  Transmission Date: 20050727
  Serious: Yes (Other)
  Sender: FDA-Public Use
  Company Number: None

PATIENT
  Age: 66 Year
  Sex: Female
  Weight: 87.5442 kg

DRUGS (1)
  1. RANITIDINE [Suspect]
     Dosage: 150 MG 2 X 1 DAY

REACTIONS (5)
  - CONDITION AGGRAVATED [None]
  - DRUG INEFFECTIVE [None]
  - HEADACHE [None]
  - OESOPHAGITIS [None]
  - PHARMACEUTICAL PRODUCT COMPLAINT [None]
